FAERS Safety Report 15189508 (Version 2)
Quarter: 2018Q3

REPORT INFORMATION
  Report Type: Spontaneous
  Country: US (occurrence: US)
  Receive Date: 20180724
  Receipt Date: 20180730
  Transmission Date: 20181010
  Serious: Yes (Other)
  Sender: FDA-Public Use
  Company Number: US-PFIZER INC-2018292689

PATIENT
  Age: 72 Year
  Sex: Female

DRUGS (4)
  1. DOXORUBICIN HCL [Suspect]
     Active Substance: DOXORUBICIN HYDROCHLORIDE
     Indication: TRANSITIONAL CELL CARCINOMA URETHRA
     Dosage: UNK
  2. ATEZOLIZUMAB. [Concomitant]
     Active Substance: ATEZOLIZUMAB
     Indication: IMMUNOSUPPRESSANT DRUG THERAPY
     Dosage: UNK
  3. MITOMYCIN. [Concomitant]
     Active Substance: MITOMYCIN
     Indication: UTERINE CANCER
  4. MITOMYCIN. [Concomitant]
     Active Substance: MITOMYCIN
     Indication: HEREDITARY NON-POLYPOSIS COLORECTAL CANCER SYNDROME
     Dosage: UNK
     Route: 043
     Dates: start: 2010

REACTIONS (7)
  - Nausea [Unknown]
  - Pancytopenia [Unknown]
  - Toxicity to various agents [Unknown]
  - Failure to thrive [Unknown]
  - Diarrhoea [Unknown]
  - Fatigue [Unknown]
  - Hypocalcaemia [Unknown]
